FAERS Safety Report 25127094 (Version 3)
Quarter: 2025Q4

REPORT INFORMATION
  Report Type: Spontaneous
  Country: US (occurrence: None)
  Receive Date: 20250327
  Receipt Date: 20251031
  Transmission Date: 20260117
  Serious: No
  Sender: UCB
  Company Number: US-UCBSA-2025007799

PATIENT
  Age: 26 Year

DRUGS (3)
  1. BIMZELX [Suspect]
     Active Substance: BIMEKIZUMAB-BKZX
     Indication: Hidradenitis
     Dosage: 320 MILLIGRAM, EV 2 WEEKS(QOW), AT WEEK 0, 2, 4, 6, 8, 10, 12, 14 AND 16, THEN EVERY 4 WEEKS THEREAFTER
  2. BIMZELX [Suspect]
     Active Substance: BIMEKIZUMAB-BKZX
     Dosage: 320 MILLIGRAM, EV 2 WEEKS(QOW) (FOR WEEKS 4-16, THEN EVERY 4 WEEKS AS DIRECTED THEREAFTER)
  3. BIMZELX [Suspect]
     Active Substance: BIMEKIZUMAB-BKZX
     Dosage: 320 MILLIGRAM, EV 4 WEEKS

REACTIONS (9)
  - Hidradenitis [Not Recovered/Not Resolved]
  - Injection site bruising [Recovering/Resolving]
  - Injection site pain [Recovering/Resolving]
  - Skin lesion [Unknown]
  - Injection site reaction [Unknown]
  - Inappropriate schedule of product administration [Unknown]
  - Product distribution issue [Unknown]
  - Drug ineffective [Unknown]
  - Product dose omission in error [Unknown]
